FAERS Safety Report 9402612 (Version 1)
Quarter: 2013Q3

REPORT INFORMATION
  Report Type: Spontaneous
  Country: DK (occurrence: FR)
  Receive Date: 20130716
  Receipt Date: 20130716
  Transmission Date: 20140515
  Serious: Yes (Hospitalization)
  Sender: FDA-Public Use
  Company Number: FR-FRI-1000046710

PATIENT
  Age: 78 Year
  Sex: Female

DRUGS (3)
  1. CITALOPRAM [Suspect]
     Dosage: 40 MG
     Route: 048
  2. XEROQUEL [Interacting]
     Dosage: 150 MG
     Route: 048
     Dates: start: 20130301
  3. FLUVOXAMINE [Interacting]
     Dosage: 100 MG
     Route: 048

REACTIONS (2)
  - Dyskinesia [Unknown]
  - Drug interaction [Unknown]
